FAERS Safety Report 9173689 (Version 1)
Quarter: 2013Q1

REPORT INFORMATION
  Report Type: Spontaneous
  Country: US (occurrence: None)
  Receive Date: 20130318
  Receipt Date: 20130318
  Transmission Date: 20140127
  Serious: No
  Sender: FDA-Public Use
  Company Number: None

PATIENT
  Age: 3 Day
  Sex: Male

DRUGS (1)
  1. XYLOCAINE [Suspect]
     Indication: LOCAL ANAESTHESIA
     Route: 023
     Dates: start: 20130316, end: 20130317

REACTIONS (2)
  - Drug ineffective [None]
  - Product quality issue [None]
